FAERS Safety Report 4415208-9 (Version None)
Quarter: 2004Q3

REPORT INFORMATION
  Report Type: 
  Country: None (occurrence: None)
  Receive Date: 20040729
  Receipt Date: 20040716
  Transmission Date: 20050211
  Serious: Yes (Other)
  Sender: FDA-Public Use
  Company Number: 2004048467

PATIENT
  Age: 60 Year
  Sex: Male
  Weight: 75.7507 kg

DRUGS (2)
  1. LIPITOR [Suspect]
     Indication: BLOOD CHOLESTEROL INCREASED
     Dosage: 10 MG (10 MG, 1 IN 1 D), ORAL
     Route: 048
     Dates: start: 20030801
  2. LORAZEPAM [Concomitant]

REACTIONS (4)
  - CORONARY ARTERY OCCLUSION [None]
  - SKIN BURNING SENSATION [None]
  - SPONDYLITIS [None]
  - THERAPY NON-RESPONDER [None]
